FAERS Safety Report 9670004 (Version 1)
Quarter: 2013Q4

REPORT INFORMATION
  Report Type: Spontaneous
  Country: US (occurrence: US)
  Receive Date: 20131105
  Receipt Date: 20131105
  Transmission Date: 20140711
  Serious: No
  Sender: FDA-Public Use
  Company Number: US-TEVA-442185USA

PATIENT
  Sex: 0

DRUGS (1)
  1. AMRIX [Suspect]

REACTIONS (2)
  - Tremor [Recovered/Resolved]
  - Feeling abnormal [Recovered/Resolved]
